FAERS Safety Report 4707409-7 (Version None)
Quarter: 2005Q3

REPORT INFORMATION
  Report Type: 
  Country: None (occurrence: None)
  Receive Date: 20050706
  Receipt Date: 20050627
  Transmission Date: 20060218
  Serious: Yes (Life-Threatening, Hospitalization)
  Sender: FDA-Public Use
  Company Number: 2005PK01129

PATIENT
  Age: 30786 Day
  Sex: Female
  Weight: 62 kg

DRUGS (5)
  1. SEROQUEL [Suspect]
     Indication: AGGRESSION
     Route: 048
     Dates: start: 20050513, end: 20050625
  2. LISINOPRIL [Concomitant]
     Indication: HYPERTENSION
     Route: 048
     Dates: start: 20050513, end: 20050625
  3. VERAPAMIL [Concomitant]
     Indication: TACHYARRHYTHMIA
     Route: 048
     Dates: start: 20040620
  4. TORSEMIDE [Concomitant]
     Indication: HYPERTENSION
     Route: 048
     Dates: start: 20041216
  5. AMARYL [Concomitant]
     Indication: DIABETES MELLITUS NON-INSULIN-DEPENDENT
     Route: 048
     Dates: start: 19980903

REACTIONS (6)
  - BLOOD PRESSURE FLUCTUATION [None]
  - CONFUSIONAL STATE [None]
  - EMBOLISM [None]
  - INFECTION [None]
  - PULMONARY OEDEMA [None]
  - RESTLESSNESS [None]
